FAERS Safety Report 8971708 (Version 1)
Quarter: 2012Q4

REPORT INFORMATION
  Report Type: 
  Country: HU (occurrence: HU)
  Receive Date: 20121217
  Receipt Date: 20121217
  Transmission Date: 20130627
  Serious: Yes (Other)
  Sender: FDA-Public Use
  Company Number: HU-ASTRAZENECA-2012SE93047

PATIENT
  Age: 2572 Day
  Sex: Male

DRUGS (2)
  1. SYMBICORT TURBUHALER [Suspect]
     Indication: ASTHMA
     Dosage: UNKNOWN DOSE,TWO TIMES A DAY
     Route: 055
     Dates: start: 20120629, end: 20121016
  2. VENTOLIN EVOHALER [Concomitant]
     Indication: ASTHMA
     Dosage: 2 PUFFS WHEN REQUIRED
     Route: 048

REACTIONS (1)
  - Enuresis [Recovered/Resolved]
